FAERS Safety Report 14295348 (Version 1)
Quarter: 2017Q4

REPORT INFORMATION
  Report Type: Spontaneous
  Country: US (occurrence: US)
  Receive Date: 20171218
  Receipt Date: 20171218
  Transmission Date: 20180321
  Serious: No
  Sender: FDA-Public Use
  Company Number: US-PFIZER INC-2017533635

PATIENT
  Age: 74 Year
  Sex: Female
  Weight: 99.77 kg

DRUGS (4)
  1. FASLODEX [Suspect]
     Active Substance: FULVESTRANT
     Dosage: UNK (THREE INJECTIONS)
     Dates: start: 2017
  2. OMEPRAZOLE. [Suspect]
     Active Substance: OMEPRAZOLE
     Indication: SLEEP DISORDER
  3. GABAPENTIN. [Suspect]
     Active Substance: GABAPENTIN
     Indication: NAUSEA
     Dosage: 300 MG, 1X/DAY [EACH NIGHT]
     Dates: start: 201711
  4. OMEPRAZOLE. [Suspect]
     Active Substance: OMEPRAZOLE
     Indication: PAIN
     Dosage: 20 MG, 1X/DAY [ERY MORNING AT 06:30 IN THE MORNING BEFORE BREAKFAST]
     Route: 048
     Dates: start: 201711

REACTIONS (4)
  - Somnolence [Not Recovered/Not Resolved]
  - Product use in unapproved indication [Unknown]
  - Condition aggravated [Not Recovered/Not Resolved]
  - Insomnia [Unknown]

NARRATIVE: CASE EVENT DATE: 201711
